FAERS Safety Report 6884365-7 (Version None)
Quarter: 2010Q3

REPORT INFORMATION
  Report Type: 
  Country: None (occurrence: None)
  Receive Date: 20100729
  Receipt Date: 20070621
  Transmission Date: 20110219
  Serious: Yes (Other)
  Sender: FDA-Public Use
  Company Number: US-PFIZER INC-2007051284

PATIENT
  Age: 59 Year
  Sex: Female

DRUGS (3)
  1. CELEBREX [Suspect]
  2. MORPHINE [Concomitant]
  3. VALIUM [Concomitant]

REACTIONS (1)
  - PANCREATITIS [None]
